FAERS Safety Report 14637302 (Version 2)
Quarter: 2018Q1

REPORT INFORMATION
  Report Type: Report from Study
  Country: JP (occurrence: JP)
  Receive Date: 20180314
  Receipt Date: 20180327
  Transmission Date: 20180509
  Serious: Yes (Hospitalization)
  Sender: FDA-Public Use
  Company Number: JP-SA-2018SA072454

PATIENT
  Age: 54 Year
  Sex: Female
  Weight: 34 kg

DRUGS (14)
  1. CINAL [Concomitant]
     Active Substance: ASCORBIC ACID\CALCIUM PANTOTHENATE
     Route: 065
     Dates: start: 20160623
  2. BIFIDOBACTERIUM [Concomitant]
     Active Substance: BIFIDOBACTERIUM LONGUM
     Dosage: STRENGTH: FINE GRANULE
     Route: 065
     Dates: start: 20180228
  3. SCOPOLAMINE BUTYLBROMIDE [Concomitant]
     Active Substance: SCOPOLAMINE
     Route: 065
     Dates: start: 20180225, end: 20180305
  4. HEPARINOID [Concomitant]
     Active Substance: CHONDROITIN SULFATE (BOVINE)
     Dosage: FORM: LOTION (EXCEPT LOTION FOR EYE)
     Route: 065
     Dates: start: 20160502
  5. SODIUM GUALENATE [Concomitant]
     Active Substance: SODIUM GUALENATE
     Dosage: MOUTHWASH , GARGLE LIQUID
     Route: 065
     Dates: start: 20160708
  6. TAS-118 [Suspect]
     Active Substance: INVESTIGATIONAL PRODUCT
     Indication: GASTRIC CANCER
     Route: 048
     Dates: start: 20160512, end: 20160519
  7. ELPLAT [Suspect]
     Active Substance: OXALIPLATIN
     Indication: GASTRIC CANCER
     Route: 041
     Dates: start: 20180207, end: 20180207
  8. CARBOCISTEINE [Concomitant]
     Active Substance: CARBOCYSTEINE
     Route: 065
     Dates: start: 20180221
  9. MOSAPRIDE CITRATE [Concomitant]
     Active Substance: MOSAPRIDE CITRATE
     Route: 065
     Dates: start: 20160709, end: 20180305
  10. CAMOSTAT MESILATE [Concomitant]
     Active Substance: CAMOSTAT MESYLATE
     Route: 065
     Dates: start: 20170419, end: 20180305
  11. ELPLAT [Suspect]
     Active Substance: OXALIPLATIN
     Indication: GASTRIC CANCER
     Route: 041
     Dates: start: 20160512, end: 20160512
  12. TAS-118 [Suspect]
     Active Substance: INVESTIGATIONAL PRODUCT
     Indication: GASTRIC CANCER
     Route: 048
     Dates: start: 20180207, end: 20180214
  13. METHYCOBAL [Concomitant]
     Active Substance: METHYLCOBALAMIN
     Route: 065
     Dates: start: 20160502, end: 20180305
  14. MIYA-BM [Concomitant]
     Active Substance: CLOSTRIDIUM BUTYRICUM SPORES STRAIN M-55
     Route: 065
     Dates: start: 20170821, end: 20180305

REACTIONS (1)
  - Ileus [Not Recovered/Not Resolved]

NARRATIVE: CASE EVENT DATE: 20180305
